FAERS Safety Report 6196915-7 (Version None)
Quarter: 2009Q2

REPORT INFORMATION
  Report Type: 
  Country: None (occurrence: None)
  Receive Date: 20090518
  Receipt Date: 20090518
  Transmission Date: 20091009
  Serious: Yes (Other)
  Sender: FDA-Public Use
  Company Number: None

PATIENT
  Age: 14 Year
  Sex: Male
  Weight: 94.8018 kg

DRUGS (2)
  1. DEPAKOTE ER [Suspect]
     Indication: AUTISM SPECTRUM DISORDER
     Dosage: 500MG X 3 QHS
     Dates: start: 20090224, end: 20090324
  2. DIVALPROEX EXTENDED-RELEASE [Concomitant]

REACTIONS (2)
  - ABNORMAL BEHAVIOUR [None]
  - PRODUCT SUBSTITUTION ISSUE [None]
